FAERS Safety Report 18356271 (Version 1)
Quarter: 2020Q4

REPORT INFORMATION
  Report Type: Spontaneous
  Country: HU (occurrence: HU)
  Receive Date: 20201007
  Receipt Date: 20201007
  Transmission Date: 20210114
  Serious: Yes (Disabling, Other)
  Sender: FDA-Public Use
  Company Number: HU-SUN PHARMACEUTICAL INDUSTRIES LTD-2020RR-263623

PATIENT
  Age: 56 Year
  Sex: Male

DRUGS (5)
  1. ACC [Concomitant]
     Active Substance: ACETYLCYSTEINE
     Indication: PRODUCT USED FOR UNKNOWN INDICATION
     Dosage: UNK
     Route: 065
  2. FUROCEF [Concomitant]
     Indication: INFLAMMATION
     Dosage: ()
     Route: 065
     Dates: start: 20200427
  3. CIPROFLOXACIN. [Suspect]
     Active Substance: CIPROFLOXACIN
     Indication: INFLAMMATION
     Dosage: ()
     Route: 048
     Dates: start: 20200324
  4. BUVENTOL [Concomitant]
     Active Substance: ALBUTEROL SULFATE
     Indication: PRODUCT USED FOR UNKNOWN INDICATION
     Dosage: UNK
     Route: 065
  5. MOXIBIOT [Concomitant]
     Indication: INFLAMMATION
     Dosage: ()
     Route: 065
     Dates: start: 20200416

REACTIONS (1)
  - Cerebral infarction [Not Recovered/Not Resolved]

NARRATIVE: CASE EVENT DATE: 202004
